FAERS Safety Report 5279365-7 (Version None)
Quarter: 2007Q1

REPORT INFORMATION
  Report Type: 
  Country: None (occurrence: None)
  Receive Date: 20070328
  Receipt Date: 20060201
  Transmission Date: 20070707
  Serious: Yes (Hospitalization)
  Sender: FDA-Public Use
  Company Number: US-AMGEN-US154558

PATIENT
  Sex: Male
  Weight: 95.3 kg

DRUGS (13)
  1. NEULASTA [Suspect]
     Indication: CHEMOTHERAPY
     Route: 058
     Dates: start: 20051008
  2. CAMPTOSAR [Concomitant]
     Route: 042
     Dates: start: 20051005
  3. LEUCOVORIN CALCIUM [Concomitant]
     Route: 042
     Dates: start: 20051005, end: 20051006
  4. FLUOROURACIL [Concomitant]
     Dates: start: 20051005
  5. AVASTIN [Concomitant]
     Route: 042
     Dates: start: 20051005
  6. COUMADIN [Concomitant]
     Route: 048
     Dates: start: 20051015
  7. TOBRADEX [Concomitant]
     Route: 047
     Dates: start: 20051015
  8. FLOVENT [Concomitant]
     Route: 055
     Dates: start: 20051014
  9. COMBIVENT [Concomitant]
     Route: 055
     Dates: start: 20051014
  10. PROTONIX [Concomitant]
     Route: 048
     Dates: start: 20051014
  11. FLOMAX [Concomitant]
     Route: 048
     Dates: start: 20051014
  12. BUMEX [Concomitant]
     Route: 048
     Dates: start: 20051015
  13. TOPROL-XL [Concomitant]
     Route: 048
     Dates: start: 20051014

REACTIONS (1)
  - FEBRILE NEUTROPENIA [None]
